FAERS Safety Report 4992196-8 (Version None)
Quarter: 2006Q2

REPORT INFORMATION
  Report Type: 
  Country: None (occurrence: None)
  Receive Date: 20060502
  Receipt Date: 20060419
  Transmission Date: 20061013
  Serious: Yes (Other)
  Sender: FDA-Public Use
  Company Number: 2006BH006044

PATIENT
  Age: 29 Year
  Sex: Male

DRUGS (1)
  1. LIDOCAINE HYDROCHLORIDE [Suspect]
     Indication: EYELID OPERATION
     Dosage: 2 ML

REACTIONS (16)
  - ANAESTHETIC COMPLICATION [None]
  - CATARACT SUBCAPSULAR [None]
  - CONJUNCTIVAL OEDEMA [None]
  - DRUG ADMINISTRATION ERROR [None]
  - DRUG INEFFECTIVE [None]
  - EYE PENETRATION [None]
  - HYPERTONIA [None]
  - IATROGENIC INJURY [None]
  - INTRAOCULAR PRESSURE INCREASED [None]
  - MYDRIASIS [None]
  - PUPILLARY REFLEX IMPAIRED [None]
  - RETINAL ARTERY OCCLUSION [None]
  - RETINAL ARTERY SPASM [None]
  - RETINAL TOXICITY [None]
  - SCLERAL DISORDER [None]
  - VISUAL ACUITY REDUCED [None]
